FAERS Safety Report 6692476-4 (Version None)
Quarter: 2010Q2

REPORT INFORMATION
  Report Type: 
  Country: None (occurrence: None)
  Receive Date: 20100422
  Receipt Date: 20100419
  Transmission Date: 20101027
  Serious: Yes (Other)
  Sender: FDA-Public Use
  Company Number: A0855684A

PATIENT
  Age: 39 Year
  Sex: Female

DRUGS (2)
  1. WELLBUTRIN SR [Suspect]
     Dosage: 100MG PER DAY
     Route: 048
     Dates: start: 20100411
  2. NO CONCURRENT MEDICATION [Concomitant]

REACTIONS (8)
  - ACTIVITIES OF DAILY LIVING IMPAIRED [None]
  - AGGRESSION [None]
  - ANXIETY [None]
  - CRYING [None]
  - DRUG INEFFECTIVE [None]
  - ILL-DEFINED DISORDER [None]
  - IRRITABILITY [None]
  - MOOD ALTERED [None]
